FAERS Safety Report 17932558 (Version 2)
Quarter: 2020Q4

REPORT INFORMATION
  Report Type: Spontaneous
  Country: BR (occurrence: BR)
  Receive Date: 20200624
  Receipt Date: 20201014
  Transmission Date: 20210113
  Serious: Yes (Life-Threatening, Hospitalization, Other)
  Sender: FDA-Public Use
  Company Number: BR-LUPIN PHARMACEUTICALS INC.-2020-02956

PATIENT
  Age: 73 Year
  Sex: Male
  Weight: 75 kg

DRUGS (9)
  1. SILDENAFIL. [Suspect]
     Active Substance: SILDENAFIL
     Dosage: 25 MILLIGRAM, QD
     Route: 048
     Dates: start: 20180202, end: 20180209
  2. BUDESONIDE;FORMOTEROL FUMARATE DIHYDRATE [Concomitant]
     Active Substance: BUDESONIDE\FORMOTEROL FUMARATE DIHYDRATE
     Indication: ASTHMA
     Dosage: 1 DOSAGE FORM, QD (6/200 MCG )
     Route: 055
     Dates: start: 1998
  3. SILDENAFIL. [Suspect]
     Active Substance: SILDENAFIL
     Dosage: 50 MILLIGRAM, QD, CAPSULE
     Route: 048
     Dates: start: 20180211, end: 20180219
  4. ROSUVASTATIN. [Concomitant]
     Active Substance: ROSUVASTATIN
     Indication: DYSLIPIDAEMIA
     Dosage: 20 MILLIGRAM
     Route: 065
  5. SILDENAFIL. [Suspect]
     Active Substance: SILDENAFIL
     Indication: DIABETIC FOOT
     Dosage: UNK
     Route: 065
     Dates: start: 201802, end: 201802
  6. SILDENAFIL. [Suspect]
     Active Substance: SILDENAFIL
     Indication: PERIPHERAL ISCHAEMIA
     Dosage: 25 MILLIGRAM, TID
     Route: 065
  7. BISOPROLOL HEMIFUMARATE [Concomitant]
     Active Substance: BISOPROLOL FUMARATE
     Indication: ASTHMA
     Dosage: 1 DOSAGE FORM, QD
     Route: 055
  8. LOSARTAN AND HYDROCHLOROTHIAZIDE [Concomitant]
     Active Substance: HYDROCHLOROTHIAZIDE\LOSARTAN POTASSIUM
     Indication: HYPERTENSION
     Dosage: 2 DOSAGE FORM, BID (MORNING AND AFTERNOON)
     Route: 065
     Dates: end: 201603
  9. AAS [Concomitant]
     Active Substance: ASPIRIN
     Indication: DYSLIPIDAEMIA
     Dosage: 100 MILLIGRAM
     Route: 065

REACTIONS (4)
  - Hypoglycaemia [Recovering/Resolving]
  - Dysarthria [Recovering/Resolving]
  - Confusional state [Recovering/Resolving]
  - Loss of consciousness [Recovering/Resolving]

NARRATIVE: CASE EVENT DATE: 20180219
